FAERS Safety Report 5046152-4 (Version None)
Quarter: 2006Q2

REPORT INFORMATION
  Report Type: 
  Country: None (occurrence: None)
  Receive Date: 20060629
  Receipt Date: 20060614
  Transmission Date: 20061013
  Serious: Yes (Death)
  Sender: FDA-Public Use
  Company Number: 2006S1005517

PATIENT
  Age: 88 Year
  Sex: Female

DRUGS (1)
  1. CLOZAPINE [Suspect]
     Indication: HALLUCINATION
     Dosage: 12.5 MG;HS;ORAL
     Route: 048
     Dates: start: 20050901, end: 20060501

REACTIONS (2)
  - INFECTION [None]
  - PNEUMONIA [None]
